FAERS Safety Report 22265928 (Version 1)
Quarter: 2023Q2

REPORT INFORMATION
  Report Type: Spontaneous
  Country: US (occurrence: US)
  Receive Date: 20230428
  Receipt Date: 20230428
  Transmission Date: 20230721
  Serious: Yes (Death, Other)
  Sender: FDA-Public Use
  Company Number: US-AMGEN-USASP2023071754

PATIENT
  Age: 12 Year
  Sex: Female

DRUGS (6)
  1. RITUXIMAB [Suspect]
     Active Substance: RITUXIMAB
     Indication: Autoimmune haemolytic anaemia
     Dosage: 375 MILLIGRAM/M^2, QWK X 4DOSES
     Route: 065
  2. CYCLOSPORINE [Concomitant]
     Active Substance: CYCLOSPORINE
     Indication: Autoimmune haemolytic anaemia
     Dosage: UNK
     Route: 065
  3. ABATACEPT [Concomitant]
     Active Substance: ABATACEPT
     Indication: Autoimmune haemolytic anaemia
     Dosage: UNK
     Route: 065
  4. FLUDARABINE [Concomitant]
     Active Substance: FLUDARABINE PHOSPHATE
     Indication: Allogenic stem cell transplantation
     Dosage: UNK
     Route: 065
  5. ALEMTUZUMAB [Concomitant]
     Active Substance: ALEMTUZUMAB
     Indication: Allogenic stem cell transplantation
     Dosage: UNK
     Route: 065
  6. BORTEZOMIB [Concomitant]
     Active Substance: BORTEZOMIB
     Indication: Product used for unknown indication
     Dosage: UNK
     Route: 065

REACTIONS (7)
  - Right ventricular failure [Fatal]
  - Autoimmune haemolytic anaemia [Fatal]
  - Adenovirus infection [Unknown]
  - Parvovirus infection [Unknown]
  - Lymphopenia [Unknown]
  - Drug ineffective for unapproved indication [Unknown]
  - Off label use [Unknown]
